FAERS Safety Report 5978885-7 (Version None)
Quarter: 2008Q4

REPORT INFORMATION
  Report Type: 
  Country: None (occurrence: None)
  Receive Date: 20081204
  Receipt Date: 20081123
  Transmission Date: 20090506
  Serious: Yes (Death)
  Sender: FDA-Public Use
  Company Number: TW-ROCHE-596262

PATIENT
  Age: 67 Year
  Sex: Female

DRUGS (4)
  1. PEG-INTERFERON ALFA 2A (RO 25-8310) [Suspect]
     Indication: HEPATITIS C
     Route: 058
  2. RIBAVIRIN [Suspect]
     Indication: HEPATITIS C
     Dosage: 1000 MG DAILY { 75 KG OR 1200 MG DAILY } 75 KG BODY WEIGHT.
     Route: 048
  3. RIBAVIRIN [Suspect]
     Route: 048
  4. EPOETIN BETA [Suspect]
     Indication: ANAEMIA
     Route: 065

REACTIONS (1)
  - PULMONARY TUBERCULOSIS [None]
